FAERS Safety Report 21067351 (Version 2)
Quarter: 2022Q3

REPORT INFORMATION
  Report Type: Spontaneous
  Country: US (occurrence: US)
  Receive Date: 20220712
  Receipt Date: 20220803
  Transmission Date: 20221027
  Serious: No
  Sender: FDA-Public Use
  Company Number: US-BRISTOL-MYERS SQUIBB COMPANY-2022-062086

PATIENT
  Age: 82 Year
  Sex: Female

DRUGS (1)
  1. REVLIMID [Suspect]
     Active Substance: LENALIDOMIDE
     Indication: T-cell lymphoma
     Dosage: TAKE 1 CAPSULE BY MOUTH ONCE A DAY FOR 14 DAYS ON DAY 2 TO DAY 15
     Route: 048
     Dates: start: 20220526

REACTIONS (8)
  - Myalgia [Unknown]
  - Muscle spasms [Unknown]
  - Pain [Unknown]
  - Arthralgia [Unknown]
  - Rash [Unknown]
  - Arthritis [Unknown]
  - Intentional product use issue [Unknown]
  - Peripheral swelling [Unknown]
